FAERS Safety Report 20622449 (Version 1)
Quarter: 2022Q1

REPORT INFORMATION
  Report Type: Spontaneous
  Country: JP (occurrence: JP)
  Receive Date: 20220322
  Receipt Date: 20220322
  Transmission Date: 20220423
  Serious: Yes (Hospitalization)
  Sender: FDA-Public Use
  Company Number: JP-PFIZER INC-202200412041

PATIENT
  Age: 88 Year
  Sex: Female
  Weight: 42 kg

DRUGS (13)
  1. AMLODIPINE BESYLATE [Suspect]
     Active Substance: AMLODIPINE BESYLATE
     Dosage: 1 DF, 1X/DAY (AFTER BREAKFAST)
  2. OLMESARTAN [Suspect]
     Active Substance: OLMESARTAN
     Dosage: 1 DF, 1X/DAY (AFTER BREAKFAST)
  3. PRAVASTATIN SODIUM [Concomitant]
     Active Substance: PRAVASTATIN SODIUM
     Dosage: 1 DF, 1X/DAY (AFTER BREAKFAST)
  4. ALLOPURINOL [Concomitant]
     Active Substance: ALLOPURINOL
     Dosage: 1 DF, 1X/DAY (AFTER BREAKFAST)
  5. NICERGOLINE [Concomitant]
     Active Substance: NICERGOLINE
     Dosage: 1 DF, 3X/DAY (AFTER BREAKFAST, LUNCH, AND DINNER)
  6. ACETAMINOPHEN [Concomitant]
     Active Substance: ACETAMINOPHEN
     Dosage: 3 DF, 4X/DAY (AFTER BREAKFAST, LUNCH, AND DINNER, AND BEFORE BEDTIME)
  7. FENTANYL CITRATE [Concomitant]
     Active Substance: FENTANYL CITRATE
     Dosage: 1 DF, 1X/DAY
  8. FENTANYL CITRATE [Concomitant]
     Active Substance: FENTANYL CITRATE
     Dosage: 1 DF, AT ONSET OF PAIN
  9. LUBIPROSTONE [Concomitant]
     Active Substance: LUBIPROSTONE
     Dosage: 1 DF, 1X/DAY (AFTER BREAKFAST)
  10. SENNOSIDES A AND B [Concomitant]
     Active Substance: SENNOSIDES A AND B
     Dosage: 1 DF, 2X/DAY (BEFORE BEDTIME)
  11. RIFAMPIN [Concomitant]
     Active Substance: RIFAMPIN
     Dosage: 3 DF, 1X/DAY (AFTER BREAKFAST)
  12. ETHAMBUTOL HYDROCHLORIDE [Concomitant]
     Active Substance: ETHAMBUTOL HYDROCHLORIDE
     Dosage: 3 DF, 1X/DAY (AFTER BREAKFAST)
  13. CLARITHROMYCIN [Concomitant]
     Active Substance: CLARITHROMYCIN
     Dosage: 2 DF, 2X/DAY (AFTER BREAKFAST AND DINNER)

REACTIONS (1)
  - Loss of consciousness [Recovered/Resolved]
